FAERS Safety Report 9185723 (Version 1)
Quarter: 2013Q1

REPORT INFORMATION
  Report Type: Spontaneous
  Country: IT (occurrence: IT)
  Receive Date: 20130325
  Receipt Date: 20130325
  Transmission Date: 20140127
  Serious: Yes (Other)
  Sender: FDA-Public Use
  Company Number: IT-TEVA-392268ISR

PATIENT
  Age: 37 Year
  Sex: Female
  Weight: 55 kg

DRUGS (1)
  1. AMOXICILLINA E ACIDO CLAVULANICO [Suspect]
     Indication: SKIN INFECTION
     Dosage: 1 GRAM DAILY;
     Route: 048
     Dates: start: 20130309, end: 20130309

REACTIONS (3)
  - Swelling [Recovered/Resolved]
  - Pruritus [Recovered/Resolved]
  - Pharyngeal oedema [Recovered/Resolved]
